FAERS Safety Report 9087124 (Version 3)
Quarter: 2014Q1

REPORT INFORMATION
  Report Type: Spontaneous
  Country: US (occurrence: US)
  Receive Date: 20130201
  Receipt Date: 20140212
  Transmission Date: 20141002
  Serious: Yes (Death, Life-Threatening, Hospitalization, Disabling, Other)
  Sender: FDA-Public Use
  Company Number: US-009507513-1301USA014637

PATIENT
  Sex: Female
  Weight: 86.17 kg

DRUGS (6)
  1. JANUVIA [Suspect]
     Indication: TYPE 2 DIABETES MELLITUS
     Dosage: 100 MG, QD
     Route: 048
     Dates: start: 20061117, end: 20070801
  2. JANUVIA [Suspect]
     Dosage: 100 MG, QD
     Route: 048
     Dates: start: 20080215, end: 20080215
  3. ONGLYZA [Suspect]
     Indication: TYPE 2 DIABETES MELLITUS
     Dosage: 5 MG, QD
     Dates: start: 20100525, end: 20100624
  4. ONGLYZA [Suspect]
     Dosage: 5 MG, QD
     Dates: start: 20100803, end: 20100803
  5. GLUCOPHAGE [Concomitant]
     Indication: TYPE 2 DIABETES MELLITUS
     Dosage: 750 DF, BID
  6. INSULIN [Concomitant]
     Indication: TYPE 2 DIABETES MELLITUS

REACTIONS (32)
  - Pancreatic carcinoma metastatic [Fatal]
  - Pancreaticoduodenectomy [Unknown]
  - Cholecystectomy [Unknown]
  - Malnutrition [Unknown]
  - Anaemia [Unknown]
  - Neoplasm malignant [Unknown]
  - Septic shock [Fatal]
  - Pneumonia [Fatal]
  - Pancreatitis chronic [Not Recovered/Not Resolved]
  - Renal failure acute [Recovered/Resolved]
  - Skin fissures [Unknown]
  - Small intestinal bacterial overgrowth [Unknown]
  - Nephropathy [Unknown]
  - Osteoporosis [Unknown]
  - Diabetes mellitus inadequate control [Unknown]
  - Back pain [Not Recovered/Not Resolved]
  - Arthralgia [Not Recovered/Not Resolved]
  - Blood cholesterol abnormal [Unknown]
  - Nail operation [Unknown]
  - Synovial cyst [Unknown]
  - Tendon sheath lesion excision [Unknown]
  - Faeces discoloured [Unknown]
  - Blood urine present [Unknown]
  - Chills [Unknown]
  - Night sweats [Unknown]
  - Bradycardia [Unknown]
  - Renal cyst [Unknown]
  - White matter lesion [Unknown]
  - Chest pain [Unknown]
  - Suture related complication [Unknown]
  - Diarrhoea [Unknown]
  - Pain in extremity [Unknown]
